FAERS Safety Report 5750394-X (Version None)
Quarter: 2008Q2

REPORT INFORMATION
  Report Type: 
  Country: None (occurrence: None)
  Receive Date: 20080523
  Receipt Date: 20080523
  Transmission Date: 20081010
  Serious: Yes (Other)
  Sender: FDA-Public Use
  Company Number: None

PATIENT
  Age: 51 Year
  Sex: Female
  Weight: 86.1834 kg

DRUGS (3)
  1. CLARITIN [Suspect]
     Indication: SEASONAL ALLERGY
     Dosage: 10 MG 1X
     Dates: start: 20080405
  2. AMBIEN [Suspect]
     Indication: SLEEP DISORDER THERAPY
     Dosage: 10 MG 1 OR 2 AT BEDTIME
     Dates: start: 20080205
  3. LIALDA [Suspect]
     Indication: COLITIS ULCERATIVE
     Dosage: ONCE DAILY 3 TABS AM 10 MG 3 TABS AT AM BREAKFAST
     Dates: start: 20060101, end: 20070101

REACTIONS (2)
  - HEART RATE INCREASED [None]
  - PALPITATIONS [None]
